FAERS Safety Report 25700329 (Version 4)
Quarter: 2025Q4

REPORT INFORMATION
  Report Type: Report from Study
  Country: US (occurrence: US)
  Receive Date: 20250819
  Receipt Date: 20251201
  Transmission Date: 20260117
  Serious: Yes (Other)
  Sender: MALLINCKRODT
  Company Number: US-MALLINCKRODT-MNK202505051

PATIENT
  Age: 40 Year
  Sex: Female

DRUGS (3)
  1. CORTICOTROPIN [Suspect]
     Active Substance: CORTICOTROPIN
     Indication: Iridocyclitis
     Route: 058
  2. CARAFATE [Concomitant]
     Active Substance: SUCRALFATE
     Dosage: UNKNOWN
  3. CARAFATE [Concomitant]
     Active Substance: SUCRALFATE
     Indication: Ulcer

REACTIONS (7)
  - Autoimmune disorder [Unknown]
  - Mental disorder [Unknown]
  - Gastrointestinal disorder [Unknown]
  - Stress [Unknown]
  - Asthenia [Unknown]
  - Inappropriate schedule of product administration [Unknown]
  - Product dose omission in error [Unknown]

NARRATIVE: CASE EVENT DATE: 20250701
